FAERS Safety Report 24359204 (Version 1)
Quarter: 2024Q3

REPORT INFORMATION
  Report Type: Spontaneous
  Country: FR (occurrence: FR)
  Receive Date: 20240924
  Receipt Date: 20240924
  Transmission Date: 20241016
  Serious: No
  Sender: Unknown Manufacturer
  Company Number: FR-ROCHE-3362152

PATIENT

DRUGS (6)
  1. GAVRETO [Suspect]
     Active Substance: PRALSETINIB
     Indication: Thyroid cancer
     Dosage: 1 CAPSULE, 21 DAYS OUT OF EVERY 28, IN THE MORNING, TAKEN ORALLY, FOR 3 MONTHS
     Route: 048
     Dates: start: 20230414
  2. GAVRETO [Suspect]
     Active Substance: PRALSETINIB
     Dosage: 1 CAPSULE, MORNING, TAKEN ORALLY, FOR 3 MONTHS
     Route: 048
     Dates: start: 20231107
  3. GAVRETO [Suspect]
     Active Substance: PRALSETINIB
     Dosage: 1 CAPSULE, 21 DAYS OUT OF EVERY 28, IN THE MORNING, TAKEN ORALLY, FOR 4 MONTHS
     Route: 048
     Dates: start: 20240419
  4. GAVRETO [Suspect]
     Active Substance: PRALSETINIB
     Dosage: 100 MILLIGRAM
     Route: 048
  5. ALPRAZOLAM [Concomitant]
     Active Substance: ALPRAZOLAM
     Indication: Product used for unknown indication
     Dosage: 1 TABLET, AS NEEDED, TAKEN ORALLY FOR 1 MONTH, TO BE RENEWED 2 TIMESIN CASE OF INSOMNIA, MAX PER 24
     Route: 048
     Dates: start: 20231107
  6. DAFALGAN CODEINE [Concomitant]
     Active Substance: ACETAMINOPHEN\CODEINE PHOSPHATE
     Indication: Product used for unknown indication
     Dosage: 1 TABLET, AS NEEDED, TAKEN ORALLY FOR 3 MONTHSMAX PER 24 HOURS: 3 TABLETS PRALSETINIB
     Route: 048
     Dates: start: 20231107

REACTIONS (2)
  - Off label use [Unknown]
  - No adverse event [Unknown]
